FAERS Safety Report 14354054 (Version 1)
Quarter: 2018Q1

REPORT INFORMATION
  Report Type: Spontaneous
  Country: FR (occurrence: FR)
  Receive Date: 20180105
  Receipt Date: 20180105
  Transmission Date: 20180509
  Serious: Yes (Hospitalization)
  Sender: FDA-Public Use
  Company Number: FR-SUN PHARMACEUTICAL INDUSTRIES LTD-2017RR-159011

PATIENT
  Age: 50 Year
  Sex: Female
  Weight: 85 kg

DRUGS (5)
  1. PIVALONE (TIXOCORTOL) [Suspect]
     Active Substance: TIXOCORTOL PIVALATE
     Indication: NASAL CONGESTION
     Dosage: UNK
     Route: 055
     Dates: start: 20171106, end: 20171107
  2. PARACETAMOL [Suspect]
     Active Substance: ACETAMINOPHEN
     Indication: PHARYNGEAL INFLAMMATION
     Dosage: UNK
     Route: 048
     Dates: start: 20171106, end: 20171107
  3. HEXASPRAY, COLLUTOIRE EN FLACON PRESSURIS? [Suspect]
     Active Substance: BICLOTYMOL
     Indication: PHARYNGEAL INFLAMMATION
     Dosage: UNK
     Route: 049
     Dates: start: 20171106, end: 20171107
  4. MAXILASE (BACITRACIN\PANCRELIPASE AMYLASE) [Suspect]
     Active Substance: BACITRACIN\PANCRELIPASE AMYLASE
     Indication: PHARYNGEAL INFLAMMATION
     Dosage: UNK
     Route: 048
     Dates: start: 20171106, end: 20171107
  5. PREDNISOLONE. [Suspect]
     Active Substance: PREDNISOLONE
     Indication: PHARYNGEAL INFLAMMATION
     Route: 048
     Dates: start: 20171106, end: 20171107

REACTIONS (3)
  - Pleural effusion [Recovering/Resolving]
  - Cellulitis [Recovered/Resolved]
  - Infectious thyroiditis [Recovering/Resolving]

NARRATIVE: CASE EVENT DATE: 20171107
